FAERS Safety Report 17015204 (Version 3)
Quarter: 2020Q1

REPORT INFORMATION
  Report Type: Report from Study
  Country: None (occurrence: US)
  Receive Date: 20191111
  Receipt Date: 20200113
  Transmission Date: 20200409
  Serious: Yes (Other)
  Sender: FDA-Public Use
  Company Number: US-ABBVIE-19K-163-2990561-00

PATIENT
  Sex: Female
  Weight: 118.04 kg

DRUGS (1)
  1. HUMIRA [Suspect]
     Active Substance: ADALIMUMAB
     Indication: RHEUMATOID ARTHRITIS
     Dosage: CITRATE FREE
     Route: 058
     Dates: start: 20190205

REACTIONS (12)
  - Medical device implantation [Unknown]
  - Rheumatoid arthritis [Unknown]
  - Gastric disorder [Unknown]
  - Medical device site nerve damage [Unknown]
  - Complex regional pain syndrome [Not Recovered/Not Resolved]
  - Gastric infection [Unknown]
  - Loss of consciousness [Not Recovered/Not Resolved]
  - Cartilage atrophy [Unknown]
  - Migraine [Not Recovered/Not Resolved]
  - Pain [Unknown]
  - Swelling [Unknown]
  - Nasopharyngitis [Unknown]

NARRATIVE: CASE EVENT DATE: 2019
